FAERS Safety Report 6056060-8 (Version None)
Quarter: 2009Q1

REPORT INFORMATION
  Report Type: 
  Country: None (occurrence: None)
  Receive Date: 20090126
  Receipt Date: 20090115
  Transmission Date: 20090719
  Serious: Yes (Hospitalization)
  Sender: FDA-Public Use
  Company Number: 2009-00181

PATIENT
  Age: 55 Year
  Sex: Female

DRUGS (5)
  1. VELCADE [Suspect]
     Indication: MULTIPLE MYELOMA
     Dosage: INTRAVENOUS
     Route: 042
     Dates: start: 20060321, end: 20060628
  2. THALIDOMIDE [Suspect]
     Indication: MULTIPLE MYELOMA
     Dosage: 200 MG, ORAL
     Route: 048
     Dates: start: 20070727, end: 20080601
  3. DEXAMETHASONE TAB [Suspect]
     Indication: MULTIPLE MYELOMA
     Dosage: 40 MG,
     Dates: start: 20070727, end: 20080601
  4. CYCLOPHOSPHAMIDE [Suspect]
     Indication: MULTIPLE MYELOMA
     Dosage: 3 G, INTRAVENOUS
     Route: 042
     Dates: start: 20080905, end: 20080905
  5. DURAGESIC-100 [Concomitant]

REACTIONS (4)
  - BONE PAIN [None]
  - DIPLOPIA [None]
  - LEUKOENCEPHALOPATHY [None]
  - MIOSIS [None]
